FAERS Safety Report 5524598-5 (Version None)
Quarter: 2007Q4

REPORT INFORMATION
  Report Type: 
  Country: None (occurrence: None)
  Receive Date: 20071123
  Receipt Date: 20071112
  Transmission Date: 20080405
  Serious: Yes (Hospitalization)
  Sender: FDA-Public Use
  Company Number: FR-JNJFOC-20071104313

PATIENT
  Age: 42 Year
  Sex: Male

DRUGS (3)
  1. TAVANIC [Suspect]
     Indication: SEPSIS
     Route: 042
  2. TAVANIC [Suspect]
     Route: 048
  3. GENTAMICIN [Concomitant]
     Indication: SEPSIS
     Route: 042

REACTIONS (10)
  - BILIRUBIN CONJUGATED INCREASED [None]
  - BLOOD BILIRUBIN INCREASED [None]
  - BLOOD BILIRUBIN UNCONJUGATED INCREASED [None]
  - BLOOD LACTATE DEHYDROGENASE INCREASED [None]
  - C-REACTIVE PROTEIN INCREASED [None]
  - GLUCOSE-6-PHOSPHATE DEHYDROGENASE DEFICIENCY [None]
  - GLYCOGEN STORAGE DISEASE TYPE I [None]
  - HAEMOLYTIC ANAEMIA [None]
  - PLATELET COUNT INCREASED [None]
  - VASCULAR OCCLUSION [None]
